FAERS Safety Report 13389850 (Version 5)
Quarter: 2018Q2

REPORT INFORMATION
  Report Type: Report from Study
  Country: DE (occurrence: DE)
  Receive Date: 20170331
  Receipt Date: 20180412
  Transmission Date: 20180711
  Serious: Yes (Other)
  Sender: FDA-Public Use
  Company Number: DE-AMGEN-DEUCT2017032321

PATIENT

DRUGS (6)
  1. ETANERCEPT [Suspect]
     Active Substance: ETANERCEPT
     Indication: EXPOSURE DURING PREGNANCY
     Dosage: 50 MG, QWK
     Route: 064
     Dates: start: 20160630, end: 20161201
  2. L-THYROXIN [Concomitant]
     Active Substance: LEVOTHYROXINE SODIUM
     Dosage: 100 MUG, QD
     Route: 064
  3. PROGESTERONE. [Concomitant]
     Active Substance: PROGESTERONE
     Indication: EXPOSURE DURING PREGNANCY
     Dosage: 200 MG, DAILY
     Route: 064
     Dates: start: 20170204
  4. L-THYROXIN [Concomitant]
     Active Substance: LEVOTHYROXINE SODIUM
     Indication: EXPOSURE DURING PREGNANCY
     Dosage: 125 MUG, QD
     Route: 064
     Dates: start: 201406
  5. PREDNISOLONE. [Concomitant]
     Active Substance: PREDNISOLONE
     Indication: EXPOSURE DURING PREGNANCY
     Dosage: 5 MG, DAILY
     Route: 064
     Dates: start: 201612
  6. PREDNISOLONE. [Concomitant]
     Active Substance: PREDNISOLONE
     Dosage: 5 MG, DAILY
     Route: 064
     Dates: start: 201701

REACTIONS (2)
  - Maternal exposure during pregnancy [Not Recovered/Not Resolved]
  - Foetal growth restriction [Unknown]

NARRATIVE: CASE EVENT DATE: 20170217
